FAERS Safety Report 21760419 (Version 2)
Quarter: 2023Q1

REPORT INFORMATION
  Report Type: Report from Study
  Country: US (occurrence: US)
  Receive Date: 20221221
  Receipt Date: 20230127
  Transmission Date: 20230418
  Serious: Yes (Other)
  Sender: FDA-Public Use
  Company Number: US-ALNYLAM PHARMACEUTICALS, INC.-ALN-2022-003593

PATIENT

DRUGS (1)
  1. GIVLAARI [Suspect]
     Active Substance: GIVOSIRAN SODIUM
     Indication: Porphyria
     Dosage: UNK
     Route: 065
     Dates: start: 20200905

REACTIONS (10)
  - Porphyria acute [Unknown]
  - Porphyria [Unknown]
  - Weight decreased [Unknown]
  - Nausea [Unknown]
  - Liver function test increased [Unknown]
  - Renal function test abnormal [Unknown]
  - Poor quality sleep [Unknown]
  - Blood homocysteine increased [Unknown]
  - Alopecia [Not Recovered/Not Resolved]
  - Serum serotonin increased [Unknown]
